FAERS Safety Report 4421682-4 (Version None)
Quarter: 2004Q3

REPORT INFORMATION
  Report Type: 
  Country: None (occurrence: None)
  Receive Date: 20040806
  Receipt Date: 20040721
  Transmission Date: 20050211
  Serious: Yes (Death, Hospitalization)
  Sender: FDA-Public Use
  Company Number: 192268

PATIENT
  Age: 50 Year
  Sex: Female

DRUGS (6)
  1. AVONEX [Suspect]
     Indication: MULTIPLE SCLEROSIS
     Dosage: 30 MCG QW IM
     Route: 030
     Dates: start: 20030716, end: 20030801
  2. AVONEX [Suspect]
     Indication: MULTIPLE SCLEROSIS
     Dosage: 30 MCG QW IM
     Route: 030
     Dates: start: 20030814
  3. KLONOPIN [Concomitant]
  4. INSULIN [Concomitant]
  5. NEURONTIN [Concomitant]
  6. SYNTHROID [Concomitant]

REACTIONS (5)
  - ARRHYTHMIA [None]
  - CELLULITIS [None]
  - INFECTION [None]
  - MYOCARDIAL INFARCTION [None]
  - RENAL FAILURE [None]
